FAERS Safety Report 5633721-3 (Version None)
Quarter: 2008Q1

REPORT INFORMATION
  Report Type: 
  Country: None (occurrence: None)
  Receive Date: 20080131
  Receipt Date: 20071127
  Transmission Date: 20080703
  Serious: No
  Sender: FDA-Public Use
  Company Number: 163-21880-07111584

PATIENT
  Age: 67 Year
  Sex: Male
  Weight: 104.3273 kg

DRUGS (2)
  1. REVLIMID [Suspect]
     Indication: MYELODYSPLASTIC SYNDROME
     Dosage: 5 MG, QD, ORAL ; 10 MG, QD, ORAL
     Route: 048
     Dates: start: 20070810
  2. REVLIMID [Suspect]
     Indication: MYELODYSPLASTIC SYNDROME
     Dosage: 5 MG, QD, ORAL ; 10 MG, QD, ORAL
     Route: 048
     Dates: start: 20070831

REACTIONS (4)
  - HAEMOGLOBIN DECREASED [None]
  - PALMAR-PLANTAR ERYTHRODYSAESTHESIA SYNDROME [None]
  - PLATELET COUNT DECREASED [None]
  - WHITE BLOOD CELL COUNT DECREASED [None]
